FAERS Safety Report 7935770-9 (Version None)
Quarter: 2011Q4

REPORT INFORMATION
  Report Type: 
  Country: None (occurrence: None)
  Receive Date: 20111123
  Receipt Date: 20111122
  Transmission Date: 20120403
  Serious: Yes (Death)
  Sender: FDA-Public Use
  Company Number: PHEH2011US009990

PATIENT
  Sex: Male

DRUGS (5)
  1. CARBIDOPA + LEVODOPA [Concomitant]
     Dosage: 10/100 MG, UNK
  2. TRAZODONE HCL [Concomitant]
     Dosage: 50 MG, UNK
  3. DIGOXIN [Concomitant]
     Dosage: 125 UG, UNK
  4. LISINOPRIL [Concomitant]
     Dosage: 5 MG, UNK
  5. EXJADE [Suspect]
     Indication: MYELODYSPLASTIC SYNDROME
     Dosage: 2000 MG, DAILY
     Route: 048
     Dates: start: 20110531

REACTIONS (1)
  - DEATH [None]
